FAERS Safety Report 23843042 (Version 1)
Quarter: 2024Q2

REPORT INFORMATION
  Report Type: Spontaneous
  Country: EG (occurrence: EG)
  Receive Date: 20240510
  Receipt Date: 20240510
  Transmission Date: 20240715
  Serious: Yes (Hospitalization, Other)
  Sender: FDA-Public Use
  Company Number: EG-MYLANLABS-2024M1040920

PATIENT
  Age: 49 Year
  Sex: Male
  Weight: 80 kg

DRUGS (1)
  1. VANCOMYCIN [Suspect]
     Active Substance: VANCOMYCIN
     Indication: Acute respiratory distress syndrome
     Dosage: 1000 MILLIGRAM, QD
     Route: 042
     Dates: start: 20240303, end: 20240313

REACTIONS (3)
  - Nephropathy toxic [Recovering/Resolving]
  - Condition aggravated [Unknown]
  - Blood creatinine increased [Recovering/Resolving]

NARRATIVE: CASE EVENT DATE: 20240303
